FAERS Safety Report 6841425-4 (Version None)
Quarter: 2010Q3

REPORT INFORMATION
  Report Type: 
  Country: None (occurrence: None)
  Receive Date: 20100714
  Receipt Date: 20070706
  Transmission Date: 20110219
  Serious: No
  Sender: FDA-Public Use
  Company Number: US-PFIZER INC-2007056989

PATIENT
  Sex: Female
  Weight: 59.1 kg

DRUGS (8)
  1. CHANTIX [Suspect]
     Indication: SMOKING CESSATION THERAPY
     Dates: start: 20070628
  2. LIPITOR [Concomitant]
  3. ACTONEL [Concomitant]
  4. DYRENIUM [Concomitant]
     Indication: HYPERTENSION
  5. FELODIPINE [Concomitant]
     Indication: HYPERTENSION
  6. BETAXOLOL HYDROCHLORIDE [Concomitant]
     Indication: HYPERTENSION
  7. HYDROCHLOROTHIAZIDE [Concomitant]
     Indication: HYPERTENSION
  8. AMBIEN [Concomitant]

REACTIONS (1)
  - FATIGUE [None]
